FAERS Safety Report 22020698 (Version 2)
Quarter: 2023Q2

REPORT INFORMATION
  Report Type: Other
  Country: US (occurrence: None)
  Receive Date: 20230222
  Receipt Date: 20230606
  Transmission Date: 20230722
  Serious: Yes (Hospitalization)
  Sender: FDA-Public Use
  Company Number: US-ROCHE-3286693

PATIENT
  Age: 59 Year
  Sex: Male

DRUGS (19)
  1. OCREVUS [Suspect]
     Active Substance: OCRELIZUMAB
     Indication: Relapsing multiple sclerosis
     Route: 042
     Dates: start: 20180529
  2. OCREVUS [Suspect]
     Active Substance: OCRELIZUMAB
     Route: 042
  3. ALBUTEROL [Concomitant]
     Active Substance: ALBUTEROL
  4. LIPITOR [Concomitant]
     Active Substance: ATORVASTATIN CALCIUM
  5. BACLOFEN [Concomitant]
     Active Substance: BACLOFEN
  6. CIPRO [Concomitant]
     Active Substance: CIPROFLOXACIN HYDROCHLORIDE
  7. VITAMIN B12 [Concomitant]
     Active Substance: CYANOCOBALAMIN
  8. FENOFIBRATE [Concomitant]
     Active Substance: FENOFIBRATE
  9. FLONASE [Concomitant]
     Active Substance: FLUTICASONE PROPIONATE
  10. GABAPENTIN [Concomitant]
     Active Substance: GABAPENTIN
  11. HIPREX (UNITED STATES) [Concomitant]
  12. METOPROLOL [Concomitant]
     Active Substance: METOPROLOL
  13. QUINAPRIL [Concomitant]
     Active Substance: QUINAPRIL
  14. ZOLOFT [Concomitant]
     Active Substance: SERTRALINE HYDROCHLORIDE
  15. VITAMIN C [Concomitant]
     Active Substance: ASCORBIC ACID
  16. CALCIUM\CHOLECALCIFEROL [Concomitant]
     Active Substance: CALCIUM\CHOLECALCIFEROL
  17. VITAMIN B12 [Concomitant]
     Active Substance: CYANOCOBALAMIN
  18. DIGOXIN [Concomitant]
     Active Substance: DIGOXIN
  19. FENOFIBRATE [Concomitant]
     Active Substance: FENOFIBRATE

REACTIONS (2)
  - COVID-19 pneumonia [Recovered/Resolved]
  - Off label use [Unknown]

NARRATIVE: CASE EVENT DATE: 20221217
